FAERS Safety Report 4416378-9 (Version None)
Quarter: 2004Q3

REPORT INFORMATION
  Report Type: 
  Country: None (occurrence: None)
  Receive Date: 20040805
  Receipt Date: 20040729
  Transmission Date: 20050211
  Serious: Yes (Hospitalization)
  Sender: FDA-Public Use
  Company Number: FR-GLAXOSMITHKLINE-B0340985A

PATIENT
  Age: 14 Year
  Sex: Male
  Weight: 57 kg

DRUGS (3)
  1. AMOXICILLIN [Suspect]
     Indication: DENTAL OPERATION
     Dosage: 2G PER DAY
     Route: 048
     Dates: start: 20040514, end: 20040517
  2. KETOPROFEN [Suspect]
     Indication: DENTAL OPERATION
     Dosage: 300MG PER DAY
     Route: 048
     Dates: start: 20040514, end: 20040517
  3. DIANTALVIC [Concomitant]
     Indication: DENTAL OPERATION
     Dosage: 6CAP PER DAY
     Route: 048
     Dates: start: 20040514, end: 20040517

REACTIONS (14)
  - ABDOMINAL PAIN [None]
  - ANOREXIA [None]
  - ASTHENIA [None]
  - BLOOD CREATININE INCREASED [None]
  - BLOOD UREA INCREASED [None]
  - C-REACTIVE PROTEIN INCREASED [None]
  - CONSTIPATION [None]
  - NAUSEA [None]
  - PALLOR [None]
  - PROTEIN URINE PRESENT [None]
  - RENAL FAILURE ACUTE [None]
  - THIRST [None]
  - TUBULOINTERSTITIAL NEPHRITIS [None]
  - WEIGHT DECREASED [None]
